FAERS Safety Report 7767423-4 (Version None)
Quarter: 2011Q3

REPORT INFORMATION
  Report Type: 
  Country: None (occurrence: None)
  Receive Date: 20110919
  Receipt Date: 20110831
  Transmission Date: 20111222
  Serious: Yes (Life-Threatening)
  Sender: FDA-Public Use
  Company Number: 54973 AE # 563

PATIENT

DRUGS (1)
  1. LUYTIES ANXIETY / DEPRESSION # 304 [Suspect]
     Indication: NERVOUSNESS
     Dosage: 1 TABLET ON 08/31/2011
     Dates: start: 20110831

REACTIONS (4)
  - PHARYNGEAL OEDEMA [None]
  - DEPRESSION [None]
  - ANXIETY [None]
  - URTICARIA [None]
